FAERS Safety Report 6913682-7 (Version None)
Quarter: 2010Q3

REPORT INFORMATION
  Report Type: 
  Country: None (occurrence: None)
  Receive Date: 20100809
  Receipt Date: 20100804
  Transmission Date: 20110219
  Serious: Yes (Other)
  Sender: FDA-Public Use
  Company Number: IN-ROXANE LABORATORIES, INC.-2010-RO-00958RO

PATIENT
  Age: 63 Year
  Sex: Male

DRUGS (2)
  1. TERBINAFINE HCL [Suspect]
     Indication: ONYCHOMYCOSIS
     Dosage: 250 MG
  2. ANTIHYPERTENSIVE [Suspect]
     Indication: HYPERTENSION

REACTIONS (2)
  - AGEUSIA [None]
  - PSORIASIS [None]
